FAERS Safety Report 4528111-0 (Version None)
Quarter: 2004Q4

REPORT INFORMATION
  Report Type: 
  Country: None (occurrence: None)
  Receive Date: 20041130
  Receipt Date: 20040914
  Transmission Date: 20050328
  Serious: No
  Sender: FDA-Public Use
  Company Number: 702285

PATIENT
  Age: 31 Year
  Sex: Female

DRUGS (1)
  1. AMEVIVE [Suspect]
     Indication: PSORIASIS

REACTIONS (2)
  - BRONCHITIS [None]
  - PYREXIA [None]
